FAERS Safety Report 24603293 (Version 1)
Quarter: 2024Q4

REPORT INFORMATION
  Report Type: Spontaneous
  Country: US (occurrence: None)
  Receive Date: 20241108
  Receipt Date: 20241108
  Transmission Date: 20250114
  Serious: Yes (Hospitalization)
  Sender: Public
  Company Number: None

PATIENT
  Age: 59 Year
  Sex: Male

DRUGS (3)
  1. XPHOZAH [Suspect]
     Active Substance: TENAPANOR HYDROCHLORIDE
     Indication: Hyperphosphataemia
     Dosage: 30 MG BID ORAL
     Route: 048
     Dates: start: 20240918
  2. VELPHORO [Suspect]
     Active Substance: SUCROFERRIC OXYHYDROXIDE
  3. FOSRENOL [Suspect]
     Active Substance: LANTHANUM CARBONATE

REACTIONS (7)
  - Diarrhoea [None]
  - Asthenia [None]
  - Fatigue [None]
  - Nonspecific reaction [None]
  - Anal fistula [None]
  - Haemorrhoids [None]
  - Constipation [None]

NARRATIVE: CASE EVENT DATE: 20240918
